FAERS Safety Report 4680784-8 (Version None)
Quarter: 2005Q2

REPORT INFORMATION
  Report Type: 
  Country: None (occurrence: None)
  Receive Date: 20050601
  Receipt Date: 20050601
  Transmission Date: 20051028
  Serious: Yes (Other)
  Sender: FDA-Public Use
  Company Number: None

PATIENT
  Sex: Female
  Weight: 82.5547 kg

DRUGS (11)
  1. CRESTOR [Suspect]
     Indication: DYSLIPIDAEMIA
     Dosage: 10 MG QHS ORAL
     Route: 048
     Dates: start: 20041130, end: 20050527
  2. HYDROCHLOROTHIAZIDE [Concomitant]
  3. NORVASC [Concomitant]
  4. ASPIRIN [Concomitant]
  5. DIOVAN [Concomitant]
  6. KLONOPIN [Concomitant]
  7. ALLEGRA [Concomitant]
  8. NEXIUM [Concomitant]
  9. SENNA S [Concomitant]
  10. CALCIUM WITH VITAMIN D [Concomitant]
  11. ZELNORM [Concomitant]

REACTIONS (3)
  - ASTHENIA [None]
  - MUSCULAR WEAKNESS [None]
  - PAIN [None]
